FAERS Safety Report 24001982 (Version 4)
Quarter: 2024Q4

REPORT INFORMATION
  Report Type: Report from Study
  Country: US (occurrence: US)
  Receive Date: 20240622
  Receipt Date: 20241031
  Transmission Date: 20250115
  Serious: Yes (Hospitalization, Other)
  Sender: JAZZ
  Company Number: US-JAZZ PHARMACEUTICALS-2024-US-005478

PATIENT
  Sex: Female

DRUGS (6)
  1. EPIDIOLEX [Suspect]
     Active Substance: CANNABIDIOL
     Indication: Product used for unknown indication
     Dosage: 2.4 MILLILITER, BID
     Route: 048
     Dates: start: 20240401
  2. EPIDIOLEX [Suspect]
     Active Substance: CANNABIDIOL
     Dosage: 11.89 MILLIGRAM/KILOGRAM, BID
     Route: 048
     Dates: start: 20240401
  3. EPIDIOLEX [Suspect]
     Active Substance: CANNABIDIOL
     Dosage: 11.38 MILLIGRAM/KILOGRAM, BID
     Dates: start: 20240401
  4. EPIDIOLEX [Suspect]
     Active Substance: CANNABIDIOL
     Dosage: 11.14 MILLIGRAM/KILOGRAM, BID
     Dates: start: 20240401
  5. CLOBAZAM [Concomitant]
     Active Substance: CLOBAZAM
     Indication: Product used for unknown indication
  6. FLUCONAZOLE [Concomitant]
     Active Substance: FLUCONAZOLE

REACTIONS (10)
  - Urinary retention [Recovering/Resolving]
  - Hospitalisation [Unknown]
  - Petit mal epilepsy [Recovered/Resolved]
  - Crying [Not Recovered/Not Resolved]
  - Tearfulness [Not Recovered/Not Resolved]
  - Depression [Not Recovered/Not Resolved]
  - Blood sodium decreased [Not Recovered/Not Resolved]
  - Blister [Recovering/Resolving]
  - Agitation [Not Recovered/Not Resolved]
  - Product administration interrupted [Recovering/Resolving]

NARRATIVE: CASE EVENT DATE: 20240101
